FAERS Safety Report 8131106-1 (Version None)
Quarter: 2012Q1

REPORT INFORMATION
  Report Type: 
  Country: None (occurrence: None)
  Receive Date: 20120213
  Receipt Date: 20120131
  Transmission Date: 20120608
  Serious: Yes (Life-Threatening, Hospitalization)
  Sender: FDA-Public Use
  Company Number: DE-JNJFOC-20120200592

PATIENT
  Age: 63 Year
  Sex: Female

DRUGS (3)
  1. INFLIXIMAB, RECOMBINANT [Suspect]
     Indication: RHEUMATOID ARTHRITIS
     Route: 042
     Dates: start: 20041122, end: 20110501
  2. LEFLUNOMIDE [Concomitant]
     Indication: PRODUCT USED FOR UNKNOWN INDICATION
     Dates: start: 20100601, end: 20110501
  3. LEFLUNOMIDE [Concomitant]
     Dates: start: 20040608, end: 20040906

REACTIONS (2)
  - B-CELL LYMPHOMA [None]
  - FEMUR FRACTURE [None]
